FAERS Safety Report 9470168 (Version 1)
Quarter: 2013Q3

REPORT INFORMATION
  Report Type: Spontaneous
  Country: US (occurrence: US)
  Receive Date: 20130822
  Receipt Date: 20130822
  Transmission Date: 20140515
  Serious: No
  Sender: FDA-Public Use
  Company Number: US-COVIDIEN/TYCO HEALTHCARE/MALLINCKRODT-T201303326

PATIENT
  Age: 12 Year
  Sex: Male

DRUGS (5)
  1. GABLOFEN [Suspect]
     Indication: MUSCLE SPASTICITY
     Dosage: 730 MCG / DAY
     Route: 037
     Dates: start: 20130517
  2. GABLOFEN [Suspect]
     Indication: CEREBRAL PALSY
     Dosage: 250 MCG / DAY
     Route: 037
  3. GABLOFEN [Suspect]
     Dosage: 500 MCG PER DAY
     Route: 037
  4. GABLOFEN [Suspect]
     Dosage: 574 MCG / DAY
     Route: 037
     Dates: start: 20130506, end: 20130507
  5. GABLOFEN [Suspect]
     Dosage: 634 MCG / DAY
     Route: 037
     Dates: start: 20130508, end: 20130516

REACTIONS (6)
  - Dyskinesia [Unknown]
  - Pyrexia [Unknown]
  - Agitation [Unknown]
  - Hyperhidrosis [Unknown]
  - Muscle spasticity [Unknown]
  - Drug ineffective [Unknown]
